FAERS Safety Report 4757516-8 (Version None)
Quarter: 2005Q3

REPORT INFORMATION
  Report Type: 
  Country: None (occurrence: None)
  Receive Date: 20050829
  Receipt Date: 20050815
  Transmission Date: 20060218
  Serious: Yes (Other)
  Sender: FDA-Public Use
  Company Number: 2005100210

PATIENT
  Age: 73 Year
  Sex: 0
  Weight: 7.0308 kg

DRUGS (8)
  1. VIAGRA [Suspect]
     Indication: ERECTILE DYSFUNCTION
     Dosage: (100 MG), ORAL
     Route: 048
     Dates: start: 20040101, end: 20050201
  2. LISINOPRIL [Concomitant]
  3. MULTIVITAMINS AND IRON (MULTIVITAMINS AND IRON) [Concomitant]
  4. GINKO BILOBA (GINKGO BILOBA) [Concomitant]
  5. IBUPROFEN [Concomitant]
  6. VITAMIN E [Concomitant]
  7. VIATMIN C (VITAMIN C) [Concomitant]
  8. CALCIUM (CALCIUM) [Concomitant]

REACTIONS (5)
  - BLINDNESS TRANSIENT [None]
  - DRUG ADMINISTRATION ERROR [None]
  - EYE INJURY [None]
  - ROAD TRAFFIC ACCIDENT [None]
  - VITREOUS FLOATERS [None]
